FAERS Safety Report 19721591 (Version 1)
Quarter: 2021Q3

REPORT INFORMATION
  Report Type: Other
  Country: US (occurrence: US)
  Receive Date: 20210818
  Receipt Date: 20210818
  Transmission Date: 20211014
  Serious: Yes (Other)
  Sender: FDA-Public Use
  Company Number: US-APOTEX-2021AP036265

PATIENT
  Age: 47 Year
  Sex: Male

DRUGS (3)
  1. RANITIDINE. [Suspect]
     Active Substance: RANITIDINE
     Indication: DYSPEPSIA
     Dosage: OTHER (IF NOT EVERYDAY, THAN EVERY OTHER DAY)
     Route: 065
     Dates: start: 200801, end: 201811
  2. RANITIDINE TABLETS [Suspect]
     Active Substance: RANITIDINE HYDROCHLORIDE
     Indication: DYSPEPSIA
     Dosage: OTHER (IF NOT EVERY DAY, EVERY OTHER DAY)
     Route: 065
     Dates: start: 200801, end: 201811
  3. ZANTAC [Suspect]
     Active Substance: RANITIDINE HYDROCHLORIDE
     Indication: DYSPEPSIA
     Dosage: OTHER (IF NOT EVERYDAY, EVERY OTHER DAY)
     Route: 065
     Dates: start: 200801, end: 201811

REACTIONS (2)
  - Renal failure [Unknown]
  - Bladder cancer [Unknown]

NARRATIVE: CASE EVENT DATE: 20161101
